FAERS Safety Report 11174116 (Version 1)
Quarter: 2015Q2

REPORT INFORMATION
  Report Type: Spontaneous
  Country: CA (occurrence: None)
  Receive Date: 20150605
  Receipt Date: 20150605
  Transmission Date: 20150821
  Serious: Yes (Other)
  Sender: FDA-Public Use
  Company Number: 2015MYN000008

PATIENT
  Age: 59 Year
  Sex: Female
  Weight: 82 kg

DRUGS (2)
  1. ERYTHROMYCIN (ERYTHROMYCIN) UNKNOWN [Suspect]
     Active Substance: ERYTHROMYCIN
  2. INFLIXIMAB (INFLIXIMAB) [Suspect]
     Active Substance: INFLIXIMAB
     Indication: PSORIASIS
     Route: 042

REACTIONS (2)
  - Asthma [None]
  - Hypoaesthesia [None]
